FAERS Safety Report 4489848-5 (Version None)
Quarter: 2004Q4

REPORT INFORMATION
  Report Type: 
  Country: None (occurrence: None)
  Receive Date: 20041101
  Receipt Date: 20041026
  Transmission Date: 20050328
  Serious: Yes (Life-Threatening, Disabling)
  Sender: FDA-Public Use
  Company Number: US-MERCK-0410USA03917

PATIENT
  Age: 59 Year
  Sex: Male

DRUGS (6)
  1. VIOXX [Suspect]
     Route: 048
     Dates: start: 20040201, end: 20040601
  2. SERZONE [Concomitant]
     Route: 065
  3. KLOR-CON [Concomitant]
     Route: 065
  4. SYNTHROID [Concomitant]
     Route: 065
  5. DIGOXIN [Concomitant]
     Route: 065
  6. LASIX [Concomitant]
     Route: 065

REACTIONS (3)
  - ABDOMINAL PAIN UPPER [None]
  - BLINDNESS TRANSIENT [None]
  - THROMBOSIS [None]
